FAERS Safety Report 9163130 (Version 1)
Quarter: 2013Q1

REPORT INFORMATION
  Report Type: Spontaneous
  Country: DK (occurrence: None)
  Receive Date: 20130227
  Receipt Date: 20130227
  Transmission Date: 20140127
  Serious: Yes (Hospitalization, Other)
  Sender: FDA-Public Use
  Company Number: 2013MA001319

PATIENT
  Age: 74 Year
  Sex: Female

DRUGS (1)
  1. DOXYCYCLINE HYCLATE DELAYED-RELEASE TABLETS 100MG (BASE) (AELLC) (DOXYCYCLINE) [Suspect]
     Route: 048
     Dates: start: 201211

REACTIONS (4)
  - Chronic obstructive pulmonary disease [None]
  - Respiratory tract infection [None]
  - Condition aggravated [None]
  - No therapeutic response [None]
